FAERS Safety Report 7814030-0 (Version None)
Quarter: 2011Q4

REPORT INFORMATION
  Report Type: 
  Country: None (occurrence: None)
  Receive Date: 20111014
  Receipt Date: 20111004
  Transmission Date: 20120403
  Serious: Yes (Death, Life-Threatening, Hospitalization, Other)
  Sender: FDA-Public Use
  Company Number: NO-JNJFOC-20080200875

PATIENT
  Sex: Male

DRUGS (5)
  1. AZATHIOPRINE [Suspect]
     Dosage: VARIABLE AND LOWER DOSES
     Route: 048
     Dates: start: 20040101, end: 20070401
  2. REMICADE [Suspect]
     Indication: CROHN'S DISEASE
     Route: 042
     Dates: start: 20040415, end: 20040610
  3. HUMIRA [Suspect]
     Indication: CROHN'S DISEASE
     Route: 058
     Dates: start: 20070101, end: 20071101
  4. AZATHIOPRINE [Suspect]
     Indication: CROHN'S DISEASE
     Route: 048
     Dates: start: 19960101, end: 20040501
  5. HUMIRA [Suspect]
     Route: 058
     Dates: start: 20050504, end: 20051110

REACTIONS (6)
  - THROMBOCYTOPENIA [None]
  - LEUKOPENIA [None]
  - HEPATOSPLENIC T-CELL LYMPHOMA [None]
  - ANAEMIA [None]
  - SEPSIS [None]
  - DRUG INEFFECTIVE [None]
